FAERS Safety Report 5660021-8 (Version None)
Quarter: 2008Q1

REPORT INFORMATION
  Report Type: 
  Country: None (occurrence: None)
  Receive Date: 20080311
  Receipt Date: 20070821
  Transmission Date: 20080703
  Serious: No
  Sender: FDA-Public Use
  Company Number: US-BAYER-200712705BCC

PATIENT
  Age: 73 Year
  Sex: Male
  Weight: 67 kg

DRUGS (4)
  1. ALEVE [Suspect]
     Dosage: TOTAL DAILY DOSE: 440 MG  UNIT DOSE: 220 MG
     Route: 048
     Dates: start: 20050101
  2. LISINOPRIL [Concomitant]
  3. ATENOLOL [Concomitant]
  4. UROXATRAL [Concomitant]

REACTIONS (1)
  - RASH [None]
